FAERS Safety Report 8185486 (Version 5)
Quarter: 2017Q1

REPORT INFORMATION
  Report Type: Spontaneous
  Country: US (occurrence: US)
  Receive Date: 20111018
  Receipt Date: 20170109
  Transmission Date: 20170429
  Serious: No
  Sender: FDA-Public Use
  Company Number: US-ASTRAZENECA-2011SE40519

PATIENT
  Age: 11955 Day
  Sex: Female
  Weight: 49.9 kg

DRUGS (6)
  1. SYNTHROID [Concomitant]
     Active Substance: LEVOTHYROXINE SODIUM
     Indication: THYROID DISORDER
     Route: 065
     Dates: start: 201501
  2. SYMBICORT [Suspect]
     Active Substance: BUDESONIDE\FORMOTEROL FUMARATE DIHYDRATE
     Indication: ASTHMA
     Dosage: 160/4.5 MG, 1 PUFF TWO TIMES A DAY
     Route: 055
     Dates: start: 2010, end: 201503
  3. ADDERALL [Concomitant]
     Active Substance: AMPHETAMINE ASPARTATE\AMPHETAMINE SULFATE\DEXTROAMPHETAMINE SACCHARATE\DEXTROAMPHETAMINE SULFATE
     Indication: ATTENTION DEFICIT/HYPERACTIVITY DISORDER
     Route: 065
     Dates: start: 2008
  4. SYMBICORT [Suspect]
     Active Substance: BUDESONIDE\FORMOTEROL FUMARATE DIHYDRATE
     Indication: ASTHMA
     Dosage: 160/4.5 MG, TWO PUFFS TWICE PER
     Route: 055
  5. TRAZODONE [Concomitant]
     Active Substance: TRAZODONE HYDROCHLORIDE
     Indication: SLEEP DISORDER
     Dates: start: 2008
  6. SYMBICORT [Suspect]
     Active Substance: BUDESONIDE\FORMOTEROL FUMARATE DIHYDRATE
     Indication: ASTHMA
     Dosage: 160/4.5 MG 1 PUFF IN THE AM AND 1 PUFF IN THE PM
     Route: 055

REACTIONS (12)
  - Malaise [Unknown]
  - Asthma [Unknown]
  - Seasonal allergy [Unknown]
  - Intentional product misuse [Unknown]
  - Dyspnoea [Unknown]
  - Food allergy [Not Recovered/Not Resolved]
  - Ill-defined disorder [Unknown]
  - Off label use [Unknown]
  - Nasopharyngitis [Unknown]
  - Drug dose omission [Unknown]
  - Product use issue [Unknown]
  - Urticaria [Unknown]

NARRATIVE: CASE EVENT DATE: 20161213
